FAERS Safety Report 7234714-5 (Version None)
Quarter: 2011Q1

REPORT INFORMATION
  Report Type: 
  Country: None (occurrence: None)
  Receive Date: 20110120
  Receipt Date: 20110112
  Transmission Date: 20110831
  Serious: No
  Sender: FDA-Public Use
  Company Number: US-BIOGENIDEC-2011BI001491

PATIENT
  Age: 42 Year
  Sex: Female

DRUGS (3)
  1. AVONEX [Suspect]
     Indication: MULTIPLE SCLEROSIS
     Route: 030
     Dates: start: 20100722, end: 20101231
  2. KLONOPIN [Concomitant]
  3. WELLBUTRIN [Concomitant]

REACTIONS (12)
  - NECK PAIN [None]
  - DEPRESSION [None]
  - MUSCLE SPASMS [None]
  - BARRETT'S OESOPHAGUS [None]
  - SKIN DISCOLOURATION [None]
  - VOMITING [None]
  - MIGRAINE [None]
  - EATING DISORDER [None]
  - HEMIPARESIS [None]
  - ABDOMINAL PAIN UPPER [None]
  - INSOMNIA [None]
  - INCREASED TENDENCY TO BRUISE [None]
